FAERS Safety Report 15761613 (Version 1)
Quarter: 2018Q4

REPORT INFORMATION
  Report Type: Spontaneous
  Country: US (occurrence: US)
  Receive Date: 20181226
  Receipt Date: 20181226
  Transmission Date: 20190205
  Serious: No
  Sender: FDA-Public Use
  Company Number: None

PATIENT
  Age: 53 Year
  Sex: Female

DRUGS (13)
  1. ADDERALL XR 25 MG [Concomitant]
  2. NITROFURANTOIN 100 MG [Concomitant]
     Active Substance: NITROFURANTOIN
  3. LEFLUNOMIDE 20 MG [Concomitant]
     Active Substance: LEFLUNOMIDE
  4. TRULICITY 1.5 MG [Concomitant]
  5. ATORVASTATIN 80 MG [Concomitant]
     Active Substance: ATORVASTATIN
  6. NIFEDIPINE ER 120 MG [Concomitant]
  7. HUMIRA [Suspect]
     Active Substance: ADALIMUMAB
     Indication: RHEUMATOID ARTHRITIS
     Dosage: ?          OTHER FREQUENCY:WEEKLY;?
     Route: 058
  8. METOPROLOL SUCCINATE 200 MG [Concomitant]
  9. OMEPRAZOLE 40 MG [Concomitant]
     Active Substance: OMEPRAZOLE
  10. QVAR [Concomitant]
     Active Substance: BECLOMETHASONE DIPROPIONATE
  11. SPIRONOLACTONE 50 MG [Concomitant]
     Active Substance: SPIRONOLACTONE
  12. LOSARTAN 100 MG [Concomitant]
     Active Substance: LOSARTAN
  13. METFORMIN ER 2000 MG [Concomitant]

REACTIONS (2)
  - Skin hypertrophy [None]
  - Dry skin [None]

NARRATIVE: CASE EVENT DATE: 20181219
